FAERS Safety Report 5066111-5 (Version None)
Quarter: 2006Q3

REPORT INFORMATION
  Report Type: 
  Country: None (occurrence: None)
  Receive Date: 20060725
  Receipt Date: 20060710
  Transmission Date: 20061208
  Serious: Yes (Hospitalization)
  Sender: FDA-Public Use
  Company Number: 227608

PATIENT
  Age: 75 Year
  Sex: Male
  Weight: 72.5 kg

DRUGS (4)
  1. AVASTIN [Suspect]
     Indication: COLON CANCER
     Dosage: 342 MG, Q2W, INTRAVENOUS
     Route: 042
     Dates: start: 20051228
  2. OXALIPLATIN                  (OXALIPLATIN) [Suspect]
     Indication: COLON CANCER
     Dosage: 134 MG, Q2W, INTRAVENOUS
     Route: 042
     Dates: start: 20051228
  3. LEUCOVORIN CALCIUM [Suspect]
     Indication: COLON CANCER
     Dosage: 358 MG, INTRAVENOUS
     Route: 042
     Dates: start: 20051228
  4. FLUOROURACIL [Suspect]
     Indication: COLON CANCER
     Dosage: 537 MG, INTRAVENOUS
     Route: 042
     Dates: start: 20051228

REACTIONS (1)
  - PNEUMONIA [None]
